FAERS Safety Report 19214473 (Version 1)
Quarter: 2021Q2

REPORT INFORMATION
  Report Type: Report from Study
  Country: IT (occurrence: IT)
  Receive Date: 20210505
  Receipt Date: 20210505
  Transmission Date: 20210717
  Serious: Yes (Hospitalization)
  Sender: FDA-Public Use
  Company Number: IT-TEVA-2021-IT-1906850

PATIENT
  Age: 78 Year
  Sex: Female

DRUGS (1)
  1. CARBOPLATINO TEVA 10 MG/ML [Suspect]
     Active Substance: CARBOPLATIN
     Indication: OVARIAN CANCER
     Dosage: 170 MG
     Route: 040
     Dates: start: 20210317, end: 20210412

REACTIONS (4)
  - Dyspnoea [Unknown]
  - Hypotension [Unknown]
  - Loss of consciousness [Unknown]
  - Rash [Unknown]

NARRATIVE: CASE EVENT DATE: 20210412
